FAERS Safety Report 8504242-5 (Version None)
Quarter: 2012Q2

REPORT INFORMATION
  Report Type: 
  Country: None (occurrence: None)
  Receive Date: 20120405
  Receipt Date: 20090423
  Transmission Date: 20120825
  Serious: Yes (Other)
  Sender: FDA-Public Use
  Company Number: PHEH2009US04101

PATIENT
  Sex: Female

DRUGS (1)
  1. RECLAST [Suspect]
     Dosage: INFUSION
     Dates: start: 20090416, end: 20090416

REACTIONS (5)
  - DEHYDRATION [None]
  - PYREXIA [None]
  - DIARRHOEA [None]
  - VOMITING [None]
  - NAUSEA [None]
